FAERS Safety Report 14846498 (Version 3)
Quarter: 2018Q4

REPORT INFORMATION
  Report Type: Spontaneous
  Country: US (occurrence: US)
  Receive Date: 20180504
  Receipt Date: 20181101
  Transmission Date: 20190204
  Serious: Yes (Hospitalization, Other)
  Sender: FDA-Public Use
  Company Number: US-GLAXOSMITHKLINE-US2018GSK078826

PATIENT
  Sex: Female

DRUGS (2)
  1. PANTOPRAZOLE [Suspect]
     Active Substance: PANTOPRAZOLE
     Indication: GASTROOESOPHAGEAL REFLUX DISEASE
     Dosage: 40 MG, UNK
     Route: 065
  2. PREVACID [Suspect]
     Active Substance: LANSOPRAZOLE
     Indication: PRODUCT USED FOR UNKNOWN INDICATION
     Dosage: UNK
     Route: 065

REACTIONS (17)
  - Nephrolithiasis [Unknown]
  - Acute kidney injury [Unknown]
  - Dialysis [Unknown]
  - Renal failure [Unknown]
  - Diabetic nephropathy [Unknown]
  - Perinephric collection [Unknown]
  - Haematuria [Unknown]
  - Renal transplant [Unknown]
  - Renal tubular necrosis [Unknown]
  - Proteinuria [Unknown]
  - Chronic kidney disease [Unknown]
  - Nephritis [Unknown]
  - Urinary incontinence [Unknown]
  - Dysuria [Unknown]
  - End stage renal disease [Unknown]
  - Urinary tract obstruction [Unknown]
  - Nephropathy [Unknown]
